FAERS Safety Report 6883923-3 (Version None)
Quarter: 2010Q3

REPORT INFORMATION
  Report Type: 
  Country: None (occurrence: None)
  Receive Date: 20100729
  Receipt Date: 20100722
  Transmission Date: 20110219
  Serious: Yes (Hospitalization)
  Sender: FDA-Public Use
  Company Number: FR-BRISTOL-MYERS SQUIBB COMPANY-15215023

PATIENT
  Age: 62 Year
  Sex: Female

DRUGS (6)
  1. ERBITUX [Suspect]
     Indication: TONGUE NEOPLASM MALIGNANT STAGE UNSPECIFIED
     Route: 042
     Dates: start: 20090427, end: 20090929
  2. CARBOPLATIN [Suspect]
     Indication: TONGUE NEOPLASM MALIGNANT STAGE UNSPECIFIED
     Route: 042
     Dates: start: 20090427, end: 20090929
  3. SOLU-MEDROL [Suspect]
     Indication: TONGUE NEOPLASM MALIGNANT STAGE UNSPECIFIED
     Route: 042
     Dates: start: 20090427, end: 20090929
  4. ONDANSETRON [Concomitant]
     Dosage: SOLN FOR INJ
     Route: 042
     Dates: start: 20090427, end: 20090929
  5. POLARAMINE [Concomitant]
     Dosage: SOLN FOR INJ 5MG/ML
     Route: 042
     Dates: start: 20090427, end: 20090929
  6. RANITIDINE HCL [Concomitant]
     Dosage: 25MG/ML SOLN FOR INJ
     Route: 042
     Dates: start: 20090427, end: 20090929

REACTIONS (1)
  - PNEUMATOSIS [None]
